FAERS Safety Report 8497647 (Version 10)
Quarter: 2014Q2

REPORT INFORMATION
  Report Type: Report from Study
  Country: CA (occurrence: CA)
  Receive Date: 20120406
  Receipt Date: 20140424
  Transmission Date: 20141212
  Serious: Yes (Hospitalization, Other)
  Sender: FDA-Public Use
  Company Number: CA-ROCHE-1052539

PATIENT
  Age: 70 Year
  Sex: Male
  Weight: 88.5 kg

DRUGS (14)
  1. RITUXAN [Suspect]
     Indication: RHEUMATOID ARTHRITIS
     Dosage: DOSE FREQUENCY: DAY 1 AND DAY 15
     Route: 042
     Dates: start: 20100706
  2. PANTOPRAZOLE [Concomitant]
     Route: 065
  3. WARFARIN [Concomitant]
     Route: 065
  4. RAMIPRIL [Concomitant]
     Route: 065
  5. ACETYLSALICYLIC ACID [Concomitant]
     Route: 065
  6. DIPHENHYDRAMINE HCL [Concomitant]
     Indication: PREMEDICATION
     Route: 048
     Dates: start: 20100706
  7. DIPHENHYDRAMINE HCL [Concomitant]
     Route: 048
     Dates: start: 20110531
  8. ACETAMINOPHEN [Concomitant]
     Indication: PREMEDICATION
     Route: 048
     Dates: start: 20100531
  9. ACETAMINOPHEN [Concomitant]
     Route: 048
     Dates: start: 20100706
  10. METHYLPREDNISOLONE [Concomitant]
     Indication: PREMEDICATION
     Route: 042
     Dates: start: 20110531, end: 20110531
  11. METHYLPREDNISOLONE [Concomitant]
     Route: 065
     Dates: start: 20100706
  12. PREDNISONE [Concomitant]
     Route: 065
  13. ASA [Concomitant]
     Route: 065
  14. ATORVASTATIN [Concomitant]
     Route: 065

REACTIONS (8)
  - Dyspnoea [Unknown]
  - Myocardial infarction [Recovered/Resolved]
  - Melanocytic naevus [Recovered/Resolved]
  - Rheumatoid arthritis [Not Recovered/Not Resolved]
  - Nasopharyngitis [Recovered/Resolved]
  - Immunodeficiency [Not Recovered/Not Resolved]
  - Vomiting [Unknown]
  - Abdominal pain upper [Not Recovered/Not Resolved]
